FAERS Safety Report 18495694 (Version 1)
Quarter: 2020Q4

REPORT INFORMATION
  Report Type: Spontaneous
  Country: US (occurrence: US)
  Receive Date: 20201112
  Receipt Date: 20201112
  Transmission Date: 20210114
  Serious: Yes (Hospitalization)
  Sender: FDA-Public Use
  Company Number: None

PATIENT
  Age: 50 Year
  Sex: Female
  Weight: 69.1 kg

DRUGS (3)
  1. CISPLATIN. [Suspect]
     Active Substance: CISPLATIN
     Dates: end: 20201029
  2. PACLITAXEL PROTEIN-BOUND PARTICLES (ALBUMIN-BOUND) [Suspect]
     Active Substance: PACLITAXEL
     Dates: end: 20201029
  3. GEMCITABINE HYDROCHLORIDE. [Suspect]
     Active Substance: GEMCITABINE HYDROCHLORIDE
     Dates: start: 20201020

REACTIONS (15)
  - Necrosis [None]
  - Infection [None]
  - Metastases to liver [None]
  - Abdominal pain [None]
  - Vomiting [None]
  - Sepsis [None]
  - Diarrhoea [None]
  - Feeling cold [None]
  - Pyrexia [None]
  - Abscess rupture [None]
  - Chills [None]
  - Ascites [None]
  - Rash [None]
  - Leukocytosis [None]
  - Tachycardia [None]

NARRATIVE: CASE EVENT DATE: 20201109
